FAERS Safety Report 6188206-5 (Version None)
Quarter: 2009Q2

REPORT INFORMATION
  Report Type: 
  Country: None (occurrence: None)
  Receive Date: 20090513
  Receipt Date: 20090330
  Transmission Date: 20091009
  Serious: Yes (Other)
  Sender: FDA-Public Use
  Company Number: GB-PFIZER INC-2009203465

PATIENT
  Age: 33 Year

DRUGS (1)
  1. CHAMPIX [Suspect]
     Dosage: 0.5 MG, UNK
     Route: 048
     Dates: start: 20080410, end: 20080417

REACTIONS (5)
  - BRONCHITIS [None]
  - DYSPEPSIA [None]
  - MALAISE [None]
  - MUSCLE STRAIN [None]
  - POLYHYDRAMNIOS [None]
